FAERS Safety Report 6031729-X (Version None)
Quarter: 2008Q4

REPORT INFORMATION
  Report Type: 
  Country: None (occurrence: None)
  Receive Date: 20081224
  Receipt Date: 20081011
  Transmission Date: 20090506
  Serious: No
  Sender: FDA-Public Use
  Company Number: 2008PV036904

PATIENT
  Sex: Female

DRUGS (5)
  1. SYMLIN [Suspect]
     Indication: TYPE 2 DIABETES MELLITUS
     Dosage: 120 MCG;BID;SC 120 MCG;BID;SC; 30 MCG; BID
     Route: 058
     Dates: start: 20050101, end: 20050101
  2. SYMLIN [Suspect]
     Indication: TYPE 2 DIABETES MELLITUS
     Dosage: 120 MCG;BID;SC 120 MCG;BID;SC; 30 MCG; BID
     Route: 058
     Dates: start: 20050101, end: 20060101
  3. SYMLIN [Suspect]
     Indication: TYPE 2 DIABETES MELLITUS
     Dosage: 120 MCG;BID;SC 120 MCG;BID;SC; 30 MCG; BID
     Route: 058
     Dates: start: 20060101, end: 20080901
  4. METFORMIN HCL [Concomitant]
  5. INSULIN U-500 [Concomitant]

REACTIONS (10)
  - BLADDER DISCOMFORT [None]
  - BLOOD GLUCOSE DECREASED [None]
  - BLOOD URINE PRESENT [None]
  - DRUG EFFECT DECREASED [None]
  - NAUSEA [None]
  - POLLAKIURIA [None]
  - PROTEIN URINE PRESENT [None]
  - STRESS [None]
  - URINARY TRACT INFECTION [None]
  - WEIGHT DECREASED [None]
